FAERS Safety Report 10079883 (Version 1)
Quarter: 2014Q2

REPORT INFORMATION
  Report Type: Report from Study
  Country: CA (occurrence: CA)
  Receive Date: 20140415
  Receipt Date: 20140415
  Transmission Date: 20141212
  Serious: Yes (Other)
  Sender: FDA-Public Use
  Company Number: CA-ABBVIE-14P-028-1224069-00

PATIENT
  Age: 39 Year
  Sex: Male
  Weight: 72.64 kg

DRUGS (3)
  1. HUMIRA [Suspect]
     Indication: ANKYLOSING SPONDYLITIS
     Route: 058
     Dates: start: 20120606, end: 20140316
  2. CELEBREX [Concomitant]
     Indication: ARTHRITIS
     Route: 048
  3. CORTISONE [Concomitant]
     Indication: ARTHRITIS

REACTIONS (4)
  - Laceration [Not Recovered/Not Resolved]
  - Pain [Unknown]
  - Open fracture [Not Recovered/Not Resolved]
  - Impaired healing [Not Recovered/Not Resolved]
